FAERS Safety Report 18165939 (Version 1)
Quarter: 2020Q3

REPORT INFORMATION
  Report Type: Spontaneous
  Country: US (occurrence: US)
  Receive Date: 20200818
  Receipt Date: 20200818
  Transmission Date: 20201103
  Serious: No
  Sender: FDA-Public Use
  Company Number: US-OTSUKA-2018_024656

PATIENT
  Sex: Female

DRUGS (3)
  1. ABILIFY [Suspect]
     Active Substance: ARIPIPRAZOLE
     Indication: BIPOLAR DISORDER
     Dosage: UNK
     Route: 065
     Dates: start: 2015, end: 2017
  2. ABILIFY [Suspect]
     Active Substance: ARIPIPRAZOLE
     Indication: MAJOR DEPRESSION
  3. ABILIFY [Suspect]
     Active Substance: ARIPIPRAZOLE
     Indication: SCHIZOPHRENIA

REACTIONS (11)
  - Injury [Unknown]
  - Compulsive shopping [Not Recovered/Not Resolved]
  - Economic problem [Unknown]
  - Divorced [Unknown]
  - Obsessive-compulsive disorder [Not Recovered/Not Resolved]
  - Theft [Not Recovered/Not Resolved]
  - Mental disorder [Unknown]
  - Compulsive hoarding [Not Recovered/Not Resolved]
  - Gambling disorder [Recovered/Resolved]
  - Shoplifting [Not Recovered/Not Resolved]
  - Loss of employment [Unknown]
